FAERS Safety Report 4376780-0 (Version None)
Quarter: 2004Q2

REPORT INFORMATION
  Report Type: 
  Country: None (occurrence: None)
  Receive Date: 20040608
  Receipt Date: 20040527
  Transmission Date: 20050107
  Serious: Yes (Hospitalization, Other)
  Sender: FDA-Public Use
  Company Number: HQWYE363806APR04

PATIENT
  Age: 38 Year
  Sex: Female
  Weight: 80.8 kg

DRUGS (2)
  1. MYLOTARG [Suspect]
     Indication: ACUTE MYELOID LEUKAEMIA
     Dosage: 11.5 MG 1X PER 1 DAY, INTRAVENOUS; 7.6 MG 1X PER 1 DAY, INTRAVENOUS
     Route: 042
     Dates: start: 20040308, end: 20040308
  2. MYLOTARG [Suspect]
     Indication: ACUTE MYELOID LEUKAEMIA
     Dosage: 11.5 MG 1X PER 1 DAY, INTRAVENOUS; 7.6 MG 1X PER 1 DAY, INTRAVENOUS
     Route: 042
     Dates: start: 20040315, end: 20040315

REACTIONS (4)
  - FEBRILE NEUTROPENIA [None]
  - PHARYNGOLARYNGEAL PAIN [None]
  - PLATELET COUNT DECREASED [None]
  - WHITE BLOOD CELL COUNT DECREASED [None]
